FAERS Safety Report 21553304 (Version 2)
Quarter: 2022Q4

REPORT INFORMATION
  Report Type: Report from Study
  Country: CA (occurrence: CA)
  Receive Date: 20221104
  Receipt Date: 20221121
  Transmission Date: 20230112
  Serious: Yes (Death, Hospitalization)
  Sender: FDA-Public Use
  Company Number: CA-BoehringerIngelheim-2022-BI-189180

PATIENT
  Age: 82 Year
  Sex: Male

DRUGS (2)
  1. OFEV [Suspect]
     Active Substance: NINTEDANIB
     Indication: Idiopathic pulmonary fibrosis
     Route: 048
     Dates: start: 20220816, end: 20221025
  2. OFEV [Suspect]
     Active Substance: NINTEDANIB
     Indication: Chronic respiratory disease

REACTIONS (6)
  - General physical health deterioration [Fatal]
  - Dysphagia [Unknown]
  - Nausea [Unknown]
  - Vomiting [Unknown]
  - Product use complaint [Recovered/Resolved]
  - Diarrhoea [Recovering/Resolving]

NARRATIVE: CASE EVENT DATE: 20220801
